FAERS Safety Report 10023410 (Version 3)
Quarter: 2014Q1

REPORT INFORMATION
  Report Type: Report from Study
  Country: EG (occurrence: EG)
  Receive Date: 20140320
  Receipt Date: 20140328
  Transmission Date: 20141002
  Serious: Yes (Other)
  Sender: FDA-Public Use
  Company Number: EG-ROCHE-1334783

PATIENT
  Age: 44 Year
  Sex: Female

DRUGS (6)
  1. PEGASYS [Suspect]
     Indication: HEPATITIS C
     Route: 058
     Dates: start: 20130901
  2. COPEGUS [Suspect]
     Indication: HEPATITIS C
     Route: 048
     Dates: start: 201310, end: 20140301
  3. RIBAVIRIN [Suspect]
     Indication: HEPATITIS C
     Route: 048
     Dates: start: 20130901, end: 201310
  4. ZANTAC [Concomitant]
     Indication: PEPTIC ULCER
     Route: 048
     Dates: start: 20130901
  5. VOLTAREN [Concomitant]
     Dosage: ON DEMAND
     Route: 048
  6. AUGMENTIN [Concomitant]
     Route: 048
     Dates: start: 20140301

REACTIONS (13)
  - Haemorrhoids [Unknown]
  - Abdominal pain upper [Not Recovered/Not Resolved]
  - Pain in extremity [Not Recovered/Not Resolved]
  - Osteoarthritis [Not Recovered/Not Resolved]
  - Pruritus [Not Recovered/Not Resolved]
  - Hypersensitivity [Not Recovered/Not Resolved]
  - Rash generalised [Not Recovered/Not Resolved]
  - Calculus ureteric [Not Recovered/Not Resolved]
  - Haematuria [Not Recovered/Not Resolved]
  - Dysuria [Not Recovered/Not Resolved]
  - Bone pain [Not Recovered/Not Resolved]
  - Peptic ulcer [Unknown]
  - Calculus ureteric [Not Recovered/Not Resolved]
